FAERS Safety Report 18891134 (Version 3)
Quarter: 2021Q2

REPORT INFORMATION
  Report Type: Spontaneous
  Country: US (occurrence: US)
  Receive Date: 20210215
  Receipt Date: 20210511
  Transmission Date: 20210717
  Serious: No
  Sender: FDA-Public Use
  Company Number: US-SA-2021SA051044

PATIENT
  Age: 17 Year
  Sex: Male
  Weight: 72.5 kg

DRUGS (1)
  1. DUPIXENT [Suspect]
     Active Substance: DUPILUMAB
     Indication: DERMATITIS ATOPIC
     Dosage: 300 MG, QOW
     Route: 058
     Dates: start: 202012

REACTIONS (9)
  - Sleep disorder [Unknown]
  - Ill-defined disorder [Unknown]
  - Product dose omission issue [Unknown]
  - Gastrointestinal infection [Unknown]
  - Pruritus [Unknown]
  - Gastric disorder [Unknown]
  - Illness [Unknown]
  - Skin fissures [Not Recovered/Not Resolved]
  - Vomiting [Unknown]

NARRATIVE: CASE EVENT DATE: 20210117
